FAERS Safety Report 25795463 (Version 3)
Quarter: 2025Q4

REPORT INFORMATION
  Report Type: Spontaneous
  Country: US (occurrence: US)
  Receive Date: 20250912
  Receipt Date: 20251014
  Transmission Date: 20260118
  Serious: No
  Sender: CALLIDITAS THERAPEUTICS AB
  Company Number: US-Calliditas-2025CAL02737

PATIENT
  Age: 46 Year
  Sex: Female

DRUGS (8)
  1. TARPEYO [Suspect]
     Active Substance: BUDESONIDE
     Indication: IgA nephropathy
     Route: 048
     Dates: start: 20250218
  2. ATRASENTAN [Concomitant]
     Active Substance: ATRASENTAN
  3. CALCIUM + VITAMIN D3 [CALCIUM;COLECALCIFEROL] [Concomitant]
  4. FARXIGA [Concomitant]
     Active Substance: DAPAGLIFLOZIN PROPANEDIOL
  5. FILSPARI [Concomitant]
     Active Substance: SPARSENTAN
  6. SODIUM BICARBONATE [Concomitant]
     Active Substance: SODIUM BICARBONATE
  7. NEPHPLEX RX [Concomitant]
     Active Substance: ASCORBIC ACID\BIOTIN\COBALAMIN\FOLIC ACID\NIACINAMIDE\PANTOTHENIC ACID\PYRIDOXINE HYDROCHLORIDE\RIBO
  8. LOSARTAN [Concomitant]
     Active Substance: LOSARTAN

REACTIONS (4)
  - Menstruation irregular [Recovered/Resolved]
  - Product dose omission issue [Recovered/Resolved]
  - Vaginal haemorrhage [Recovered/Resolved]
  - Gastrooesophageal reflux disease [Recovering/Resolving]

NARRATIVE: CASE EVENT DATE: 20250701
